FAERS Safety Report 7773832-X (Version None)
Quarter: 2011Q3

REPORT INFORMATION
  Report Type: 
  Country: None (occurrence: None)
  Receive Date: 20110923
  Receipt Date: 20110914
  Transmission Date: 20111222
  Serious: Yes (Other)
  Sender: FDA-Public Use
  Company Number: US-JNJFOC-20100707913

PATIENT
  Sex: Female
  Weight: 51.26 kg

DRUGS (67)
  1. DURAGESIC-100 [Suspect]
     Dosage: 50UG/HR+100UG/HR
     Route: 062
     Dates: start: 20100101
  2. DURAGESIC-100 [Suspect]
     Route: 062
     Dates: start: 20100831
  3. DURAGESIC-100 [Suspect]
     Route: 062
     Dates: start: 20100803
  4. DURAGESIC-100 [Suspect]
     Route: 062
     Dates: start: 20100707
  5. DURAGESIC-100 [Suspect]
     Route: 062
     Dates: start: 20100610
  6. DURAGESIC-100 [Suspect]
     Route: 062
     Dates: start: 20090101, end: 20100101
  7. DURAGESIC-100 [Suspect]
     Dosage: 50UG/HR+100UG/HR
     Route: 062
     Dates: start: 20100101
  8. DURAGESIC-100 [Suspect]
     Route: 062
     Dates: start: 20100707
  9. FENTANYL-100 [Suspect]
     Route: 062
  10. FENTANYL-100 [Suspect]
     Route: 062
     Dates: start: 20100602
  11. NEXIUM [Concomitant]
     Indication: GASTROOESOPHAGEAL REFLUX DISEASE
     Route: 048
     Dates: start: 20010101
  12. TEMAZEPAM [Concomitant]
     Route: 065
     Dates: start: 20100803
  13. TEMAZEPAM [Concomitant]
     Route: 065
     Dates: start: 20100707
  14. TEMAZEPAM [Concomitant]
     Dosage: AT BEDTIME
     Route: 065
     Dates: start: 20100831
  15. DIAZEPAM [Concomitant]
     Dosage: 28 DAYS
     Route: 065
     Dates: start: 20100707
  16. DIAZEPAM [Concomitant]
     Dosage: 28 DAYS
     Route: 065
     Dates: start: 20100831
  17. DURAGESIC-100 [Suspect]
     Route: 062
     Dates: start: 20100803
  18. DURAGESIC-100 [Suspect]
     Route: 062
     Dates: start: 20100831
  19. DURAGESIC-100 [Suspect]
     Route: 062
     Dates: start: 20100610
  20. FENTANYL-100 [Suspect]
     Route: 062
     Dates: start: 20100602
  21. FENTANYL-100 [Suspect]
     Route: 062
     Dates: start: 20100101, end: 20100101
  22. FENTANYL-100 [Suspect]
     Indication: PAIN
     Route: 062
     Dates: start: 20100101, end: 20100101
  23. DIAZEPAM [Concomitant]
     Dosage: 28 DAYS
     Route: 065
     Dates: start: 20100610
  24. DURAGESIC-100 [Suspect]
     Indication: ARTHRALGIA
     Route: 062
     Dates: start: 20100610
  25. DURAGESIC-100 [Suspect]
     Route: 062
     Dates: start: 20100707
  26. DURAGESIC-100 [Suspect]
     Indication: BACK PAIN
     Route: 062
     Dates: start: 20100707
  27. FENTANYL-100 [Suspect]
     Indication: BACK PAIN
     Route: 062
     Dates: start: 20100504
  28. TEMAZEPAM [Concomitant]
     Route: 065
     Dates: start: 20100602
  29. DIAZEPAM [Concomitant]
     Dosage: 28 DAYS
     Route: 065
     Dates: start: 20100504
  30. DIAZEPAM [Concomitant]
     Dosage: 28 DAYS
     Route: 065
     Dates: start: 20100803
  31. DURAGESIC-100 [Suspect]
     Route: 062
     Dates: start: 20090101, end: 20100101
  32. DURAGESIC-100 [Suspect]
     Route: 062
     Dates: start: 20100101
  33. DURAGESIC-100 [Suspect]
     Route: 062
     Dates: start: 20100831
  34. FENTANYL-100 [Suspect]
     Route: 062
     Dates: start: 20100101, end: 20100101
  35. DIAZEPAM [Concomitant]
     Dosage: 28 DAYS
     Route: 065
     Dates: start: 20100602
  36. DURAGESIC-100 [Suspect]
     Route: 062
     Dates: start: 20100101
  37. DURAGESIC-100 [Suspect]
     Route: 062
     Dates: start: 20100831
  38. DURAGESIC-100 [Suspect]
     Route: 062
     Dates: start: 20100707
  39. DURAGESIC-100 [Suspect]
     Route: 062
     Dates: start: 20100803
  40. DURAGESIC-100 [Suspect]
     Route: 062
     Dates: start: 20100101
  41. FENTANYL-100 [Suspect]
     Indication: PAIN IN EXTREMITY
     Route: 062
  42. TEMAZEPAM [Concomitant]
     Route: 065
     Dates: start: 20100709
  43. DIAZEPAM [Concomitant]
     Dosage: 28 DAYS
     Route: 065
     Dates: start: 20100831
  44. FENTANYL-100 [Suspect]
     Indication: PAIN
     Route: 062
     Dates: start: 20010101, end: 20010101
  45. DURAGESIC-100 [Suspect]
     Route: 062
     Dates: start: 20100803
  46. DURAGESIC-100 [Suspect]
     Route: 062
     Dates: start: 20090101, end: 20100101
  47. DURAGESIC-100 [Suspect]
     Dosage: 50UG/HR+100UG/HR
     Route: 062
     Dates: start: 20100101
  48. DURAGESIC-100 [Suspect]
     Route: 062
     Dates: start: 20100831
  49. FENTANYL-100 [Suspect]
     Route: 062
     Dates: start: 20100504
  50. NEURONTIN [Concomitant]
     Indication: ARTHRALGIA
     Route: 048
     Dates: start: 19990101
  51. UNKNOWN MEDICATION [Concomitant]
     Indication: PRODUCT USED FOR UNKNOWN INDICATION
     Route: 065
  52. DURAGESIC-100 [Suspect]
     Dosage: 50UG/HR+100UG/HR
     Route: 062
     Dates: start: 20100101
  53. DURAGESIC-100 [Suspect]
     Route: 062
     Dates: start: 20100803
  54. DURAGESIC-100 [Suspect]
     Indication: PAIN
     Route: 062
     Dates: start: 20090101, end: 20100101
  55. FENTANYL-100 [Suspect]
     Route: 062
     Dates: start: 20100602
  56. DURAGESIC-100 [Suspect]
     Route: 062
     Dates: end: 20090101
  57. DURAGESIC-100 [Suspect]
     Route: 062
     Dates: end: 20090101
  58. DURAGESIC-100 [Suspect]
     Indication: PAIN IN EXTREMITY
     Route: 062
     Dates: start: 20090101, end: 20100101
  59. DURAGESIC-100 [Suspect]
     Route: 062
     Dates: start: 20100610
  60. DURAGESIC-100 [Suspect]
     Route: 062
     Dates: start: 20100101
  61. DURAGESIC-100 [Suspect]
     Indication: CARPAL TUNNEL SYNDROME
     Route: 062
     Dates: start: 20100101
  62. DURAGESIC-100 [Suspect]
     Route: 062
     Dates: start: 20100610
  63. DURAGESIC-100 [Suspect]
     Dosage: 50UG/HR+100UG/HR
     Route: 062
     Dates: start: 20100101
  64. FENTANYL-100 [Suspect]
     Route: 062
  65. FENTANYL-100 [Suspect]
     Route: 062
     Dates: start: 20100504
  66. TEMAZEPAM [Concomitant]
     Route: 065
     Dates: start: 20100610
  67. TEMAZEPAM [Concomitant]
     Route: 065
     Dates: start: 20100504

REACTIONS (16)
  - KYPHOSCOLIOSIS [None]
  - PAIN [None]
  - MYALGIA [None]
  - SPLINTER [None]
  - DRUG INEFFECTIVE [None]
  - RESTLESSNESS [None]
  - BACK PAIN [None]
  - ARTHROSCOPY [None]
  - SUTURE INSERTION [None]
  - FEELING JITTERY [None]
  - COLONOSCOPY [None]
  - OSTEOARTHRITIS [None]
  - HYPERSENSITIVITY [None]
  - MALAISE [None]
  - THERAPEUTIC PROCEDURE [None]
  - IRRITABILITY [None]
